FAERS Safety Report 7031270-1 (Version None)
Quarter: 2010Q4

REPORT INFORMATION
  Report Type: 
  Country: None (occurrence: None)
  Receive Date: 20101006
  Receipt Date: 20100929
  Transmission Date: 20110411
  Serious: Yes (Death, Hospitalization)
  Sender: FDA-Public Use
  Company Number: A0885068A

PATIENT
  Sex: Male
  Weight: 66 kg

DRUGS (5)
  1. SERETIDE [Suspect]
     Indication: CHRONIC OBSTRUCTIVE PULMONARY DISEASE
     Dosage: 2PUFF TWICE PER DAY
     Route: 055
     Dates: start: 20040101, end: 20100525
  2. ATROVENT [Concomitant]
     Dosage: 6PUFF PER DAY
     Route: 055
     Dates: start: 20100101, end: 20100525
  3. CAPTOPRIL [Concomitant]
     Dosage: 1TAB PER DAY
     Dates: start: 20000101, end: 20100525
  4. LASIX [Concomitant]
     Dosage: 1TAB PER DAY
     Dates: start: 20000101, end: 20100525
  5. CYPROTERONE [Concomitant]
     Dosage: 1TAB PER DAY
     Dates: start: 20100101, end: 20100525

REACTIONS (3)
  - INFARCTION [None]
  - LUNG NEOPLASM MALIGNANT [None]
  - PNEUMONIA [None]
